FAERS Safety Report 9129242 (Version 2)
Quarter: 2013Q3

REPORT INFORMATION
  Report Type: Spontaneous
  Country: US (occurrence: US)
  Receive Date: 20130125
  Receipt Date: 20130710
  Transmission Date: 20140515
  Serious: No
  Sender: FDA-Public Use
  Company Number: US-009507513-2012SP014259

PATIENT
  Sex: Male

DRUGS (3)
  1. NASONEX [Suspect]
     Indication: RHINORRHOEA
     Dosage: 4 DF, 2 PUFFS IN THE MORNING, 2 PUFFS IN THE EVENING
     Route: 045
  2. NASONEX [Suspect]
     Dosage: 4 DF, QD
     Route: 045
  3. FLOVENT [Concomitant]

REACTIONS (3)
  - Rhinorrhoea [Not Recovered/Not Resolved]
  - Underdose [Unknown]
  - Therapeutic response decreased [Unknown]
